FAERS Safety Report 9332988 (Version 3)
Quarter: 2013Q3

REPORT INFORMATION
  Report Type: Spontaneous
  Country: US (occurrence: US)
  Receive Date: 20130606
  Receipt Date: 20130828
  Transmission Date: 20140515
  Serious: Yes (Other)
  Sender: FDA-Public Use
  Company Number: US-PFIZER INC-2013170615

PATIENT
  Age: 53 Year
  Sex: Male
  Weight: 81.63 kg

DRUGS (3)
  1. LYRICA [Suspect]
     Indication: PAIN MANAGEMENT
     Dosage: 50 MG, 3X/DAY
     Route: 048
     Dates: start: 201103
  2. LYRICA [Suspect]
     Indication: AFFECTIVE DISORDER
     Dosage: 50 MG, 2X/DAY
     Route: 048
     Dates: start: 20120815
  3. HUMIRA [Concomitant]
     Indication: PSORIATIC ARTHROPATHY
     Dosage: UNK

REACTIONS (6)
  - Off label use [Unknown]
  - Speech disorder [Unknown]
  - Activities of daily living impaired [Unknown]
  - Feeling of relaxation [Unknown]
  - Therapeutic response unexpected [Unknown]
  - Insomnia [Unknown]
